FAERS Safety Report 22390065 (Version 1)
Quarter: 2023Q2

REPORT INFORMATION
  Report Type: Spontaneous
  Country: US (occurrence: US)
  Receive Date: 20230531
  Receipt Date: 20230531
  Transmission Date: 20230721
  Serious: No
  Sender: FDA-Public Use
  Company Number: US-Covis Pharma Europe B.V.-2023COV01147

PATIENT
  Age: 72 Year
  Sex: Female

DRUGS (1)
  1. TUDORZA PRESSAIR [Suspect]
     Active Substance: ACLIDINIUM BROMIDE
     Indication: Product used for unknown indication
     Dosage: I HAVE BEEN ON THIS MEDICATION 20 YEARS; 30 DOSES, 400 MCG; NDC #: 0310-0800-39

REACTIONS (6)
  - Presyncope [Unknown]
  - Ageusia [Unknown]
  - Feeling abnormal [Unknown]
  - Fatigue [Unknown]
  - Malaise [Unknown]
  - Incorrect dose administered by device [Unknown]
